FAERS Safety Report 11658662 (Version 1)
Quarter: 2015Q4

REPORT INFORMATION
  Report Type: Spontaneous
  Country: US (occurrence: US)
  Receive Date: 20151026
  Receipt Date: 20151026
  Transmission Date: 20160304
  Serious: No
  Sender: FDA-Public Use
  Company Number: PHEH2015US021228

PATIENT
  Sex: Male

DRUGS (2)
  1. VALSARTAN. [Suspect]
     Active Substance: VALSARTAN
     Indication: HYPERTENSION
     Dosage: 160 MG, QD
     Route: 048
  2. VALSARTAN. [Suspect]
     Active Substance: VALSARTAN
     Dosage: 80 MG, QD
     Route: 048

REACTIONS (1)
  - Blood pressure inadequately controlled [Unknown]
